FAERS Safety Report 4426303-2 (Version None)
Quarter: 2004Q3

REPORT INFORMATION
  Report Type: 
  Country: None (occurrence: None)
  Receive Date: 20040811
  Receipt Date: 20040727
  Transmission Date: 20050211
  Serious: Yes (Hospitalization)
  Sender: FDA-Public Use
  Company Number: 04P-056-0268352-00

PATIENT
  Age: 82 Year
  Sex: Female

DRUGS (3)
  1. VERCYTE [Suspect]
     Indication: THROMBOCYTHAEMIA
  2. SOTALOL HCL [Concomitant]
  3. VENLAFAXINE HCL [Concomitant]

REACTIONS (1)
  - DIPLEGIA [None]
